FAERS Safety Report 6517350-5 (Version None)
Quarter: 2009Q4

REPORT INFORMATION
  Report Type: 
  Country: None (occurrence: None)
  Receive Date: 20091223
  Receipt Date: 20091209
  Transmission Date: 20100525
  Serious: Yes (Other)
  Sender: FDA-Public Use
  Company Number: TR-PFIZER INC-2009309585

PATIENT
  Age: 12 Year
  Sex: Male

DRUGS (12)
  1. SERTRALINE HCL [Suspect]
     Indication: OBSESSIVE-COMPULSIVE DISORDER
     Dosage: 50 TO 100 MG/DAY
  2. SERTRALINE HCL [Suspect]
     Indication: ATTENTION DEFICIT/HYPERACTIVITY DISORDER
     Dosage: 100 MG, UNK
  3. SERTRALINE HCL [Suspect]
     Indication: ANXIETY
  4. RISPERIDONE [Suspect]
     Indication: OBSESSIVE-COMPULSIVE DISORDER
     Dosage: 3 MG/DAY
  5. RISPERIDONE [Suspect]
     Indication: ATTENTION DEFICIT/HYPERACTIVITY DISORDER
     Dosage: 5 MG/DAY
  6. RISPERIDONE [Suspect]
     Indication: ANXIETY
     Dosage: 2 MG/DAY
  7. CLOMIPRAMINE [Suspect]
     Indication: OBSESSIVE-COMPULSIVE DISORDER
     Dosage: 75 MG/DAY
  8. CLOMIPRAMINE [Suspect]
     Indication: ATTENTION DEFICIT/HYPERACTIVITY DISORDER
     Dosage: UP TO 200 MG/DAY
  9. CLOMIPRAMINE [Suspect]
     Indication: ANXIETY
     Dosage: 150 MG/DAY
  10. FLUVOXAMINE [Suspect]
     Indication: OBSESSIVE-COMPULSIVE DISORDER
     Dosage: 150 MG/DAY
  11. FLUVOXAMINE [Suspect]
     Indication: ATTENTION DEFICIT/HYPERACTIVITY DISORDER
  12. FLUVOXAMINE [Suspect]
     Indication: ANXIETY

REACTIONS (9)
  - DIZZINESS [None]
  - DRUG EFFECT DECREASED [None]
  - FATIGUE [None]
  - HALLUCINATION, AUDITORY [None]
  - HALLUCINATION, VISUAL [None]
  - PAIN IN EXTREMITY [None]
  - PARANOIA [None]
  - SEDATION [None]
  - WEIGHT DECREASED [None]
